FAERS Safety Report 11325087 (Version 3)
Quarter: 2015Q3

REPORT INFORMATION
  Report Type: Report from Study
  Country: BR (occurrence: BR)
  Receive Date: 20150730
  Receipt Date: 20150902
  Transmission Date: 20151125
  Serious: Yes (Other)
  Sender: FDA-Public Use
  Company Number: PHHY2015BR089538

PATIENT
  Sex: Female
  Weight: 46 kg

DRUGS (2)
  1. VALSARTAN. [Suspect]
     Active Substance: VALSARTAN
     Indication: HYPERTENSION
     Dosage: UNK
     Route: 065
  2. ACLASTA [Suspect]
     Active Substance: ZOLEDRONIC ACID
     Indication: OSTEOPOROSIS
     Dosage: UNK UNK, Q12MO
     Route: 065
     Dates: start: 20150107

REACTIONS (9)
  - Osteoarthritis [Recovering/Resolving]
  - Gait disturbance [Unknown]
  - Posture abnormal [Recovering/Resolving]
  - Incision site pain [Unknown]
  - Pain [Recovering/Resolving]
  - Fall [Unknown]
  - Hypertension [Recovering/Resolving]
  - Osteoporosis [Recovering/Resolving]
  - Asthenia [Recovering/Resolving]
